FAERS Safety Report 8241147-1 (Version None)
Quarter: 2012Q1

REPORT INFORMATION
  Report Type: 
  Country: None (occurrence: None)
  Receive Date: 20120328
  Receipt Date: 20120321
  Transmission Date: 20120608
  Serious: Yes (Hospitalization)
  Sender: FDA-Public Use
  Company Number: SE-PFIZER INC-2012032440

PATIENT
  Age: 68 Year
  Sex: Female
  Weight: 50 kg

DRUGS (5)
  1. NALOXONE/OXYCODONE [Concomitant]
     Dosage: 25 MG, 2X/DAY
  2. LYRICA [Suspect]
     Indication: BACK PAIN
     Dosage: 100 MG, 2X/DAY
     Dates: start: 20110110, end: 20110825
  3. OMEPRAZOLE [Concomitant]
     Dosage: 20 MG, 1X/DAY
     Dates: start: 20110120
  4. TERIPARATIDE [Concomitant]
     Dosage: 20 UG/80 MMOL ONCE DAILY
     Dates: start: 20110519
  5. ETALPHA [Concomitant]
     Dosage: 0.5 UG, 1X/DAY
     Dates: start: 20110519

REACTIONS (8)
  - MUSCULAR WEAKNESS [None]
  - FEELING COLD [None]
  - FATIGUE [None]
  - NAUSEA [None]
  - WITHDRAWAL SYNDROME [None]
  - DIZZINESS [None]
  - HEADACHE [None]
  - COLD SWEAT [None]
